FAERS Safety Report 5267093-3 (Version None)
Quarter: 2007Q1

REPORT INFORMATION
  Report Type: 
  Country: None (occurrence: None)
  Receive Date: 20070316
  Receipt Date: 20070307
  Transmission Date: 20070707
  Serious: Yes (Death)
  Sender: FDA-Public Use
  Company Number: PHBS2007DE04212

PATIENT
  Age: 55 Year
  Sex: Male

DRUGS (3)
  1. CYCLOSPORINE [Suspect]
     Indication: LIVER TRANSPLANT
  2. AZATHIOPRINE [Suspect]
     Indication: LIVER TRANSPLANT
  3. PREDNISONE [Suspect]
     Indication: LIVER TRANSPLANT

REACTIONS (2)
  - METASTASES TO LUNG [None]
  - OESOPHAGEAL SQUAMOUS CELL CARCINOMA [None]
